FAERS Safety Report 12754175 (Version 1)
Quarter: 2016Q3

REPORT INFORMATION
  Report Type: Spontaneous
  Country: DE (occurrence: DE)
  Receive Date: 20160916
  Receipt Date: 20160916
  Transmission Date: 20161109
  Serious: Yes (Death, Hospitalization)
  Sender: FDA-Public Use
  Company Number: DE-009507513-1609DEU003587

PATIENT
  Age: 42 Year
  Sex: Male
  Weight: 80 kg

DRUGS (1)
  1. TEMOZOLOMIDE. [Suspect]
     Active Substance: TEMOZOLOMIDE
     Indication: GLIOBLASTOMA
     Dosage: UNK
     Route: 048
     Dates: start: 20160721

REACTIONS (1)
  - Acute interstitial pneumonitis [Fatal]

NARRATIVE: CASE EVENT DATE: 20160724
